FAERS Safety Report 6367770-7 (Version None)
Quarter: 2009Q3

REPORT INFORMATION
  Report Type: 
  Country: None (occurrence: None)
  Receive Date: 20090921
  Receipt Date: 20090915
  Transmission Date: 20100115
  Serious: Yes (Hospitalization)
  Sender: FDA-Public Use
  Company Number: DE-TEVA-209661ISR

PATIENT
  Age: 58 Year
  Sex: Male
  Weight: 88 kg

DRUGS (1)
  1. OXALIPLATIN [Suspect]
     Indication: RECTAL CANCER
     Route: 042
     Dates: start: 20090720

REACTIONS (2)
  - DIABETIC KETOACIDOTIC HYPERGLYCAEMIC COMA [None]
  - TYPE 1 DIABETES MELLITUS [None]
